FAERS Safety Report 10223596 (Version 2)
Quarter: 2014Q2

REPORT INFORMATION
  Report Type: Spontaneous
  Country: AU (occurrence: AU)
  Receive Date: 20140609
  Receipt Date: 20140609
  Transmission Date: 20141212
  Serious: Yes (Hospitalization)
  Sender: FDA-Public Use
  Company Number: AU-UCBSA-122729

PATIENT
  Age: 69 Year
  Sex: Male

DRUGS (1)
  1. NEUPRO [Suspect]
     Dosage: 2 MG/ 24 HOUR
     Route: 062
     Dates: start: 20131205

REACTIONS (2)
  - Confusional state [Recovered/Resolved]
  - Loss of consciousness [Recovered/Resolved]
